FAERS Safety Report 25024459 (Version 1)
Quarter: 2025Q1

REPORT INFORMATION
  Report Type: Spontaneous
  Country: ES (occurrence: ES)
  Receive Date: 20250228
  Receipt Date: 20250228
  Transmission Date: 20250409
  Serious: Yes (Hospitalization)
  Sender: SANOFI AVENTIS
  Company Number: ES-SA-2025SA059984

PATIENT
  Sex: Male

DRUGS (2)
  1. FABRAZYME [Suspect]
     Active Substance: AGALSIDASE BETA
     Indication: Fabry^s disease
     Dosage: UNK UNK, Q15D
     Route: 042
  2. CARBAMAZEPINE [Concomitant]
     Active Substance: CARBAMAZEPINE

REACTIONS (2)
  - Atrioventricular block [Recovering/Resolving]
  - Disease progression [Unknown]
